FAERS Safety Report 7641123-3 (Version None)
Quarter: 2011Q3

REPORT INFORMATION
  Report Type: 
  Country: None (occurrence: None)
  Receive Date: 20110728
  Receipt Date: 20110715
  Transmission Date: 20111222
  Serious: Yes (Other)
  Sender: FDA-Public Use
  Company Number: US-ELI_LILLY_AND_COMPANY-US201107004788

PATIENT
  Sex: Female

DRUGS (4)
  1. CYMBALTA [Suspect]
     Dosage: 60 MG, QD
  2. CYMBALTA [Suspect]
     Dosage: 90 MG, QD
  3. THYROID THERAPY [Concomitant]
  4. CYMBALTA [Suspect]
     Indication: DEPRESSION
     Dosage: UNK
     Dates: start: 20080101

REACTIONS (4)
  - MUSCULAR DYSTROPHY [None]
  - THYROID DISORDER [None]
  - DEPRESSION [None]
  - MOBILITY DECREASED [None]
